FAERS Safety Report 12891206 (Version 2)
Quarter: 2016Q4

REPORT INFORMATION
  Report Type: Spontaneous
  Country: CN (occurrence: CN)
  Receive Date: 20161027
  Receipt Date: 20161129
  Transmission Date: 20170207
  Serious: Yes (Other)
  Sender: FDA-Public Use
  Company Number: PHHY2016CN147101

PATIENT

DRUGS (1)
  1. TELBIVUDINE [Suspect]
     Active Substance: TELBIVUDINE
     Indication: ANTIRETROVIRAL THERAPY
     Route: 065

REACTIONS (8)
  - Choking [Recovering/Resolving]
  - Myoglobin blood increased [Recovering/Resolving]
  - Eyelid oedema [Recovering/Resolving]
  - Localised oedema [Recovering/Resolving]
  - Sputum retention [Recovering/Resolving]
  - Rash [Recovering/Resolving]
  - Blood creatine phosphokinase increased [Recovering/Resolving]
  - Musculoskeletal pain [Recovering/Resolving]
